FAERS Safety Report 7410432-5 (Version None)
Quarter: 2011Q2

REPORT INFORMATION
  Report Type: 
  Country: None (occurrence: None)
  Receive Date: 20110412
  Receipt Date: 20110331
  Transmission Date: 20111010
  Serious: Yes (Other)
  Sender: FDA-Public Use
  Company Number: IT-BAYER-2011-028247

PATIENT
  Age: 44 Year
  Sex: Female

DRUGS (4)
  1. AZOPT [Concomitant]
     Route: 047
  2. EUTIROX [Concomitant]
     Dosage: DAILY DOSE 100 ?G
     Route: 048
  3. ASPIRIN [Concomitant]
     Dosage: DAILY DOSE 500 MG
     Route: 048
  4. AVELOX [Suspect]
     Indication: TRACHEITIS
     Dosage: 400 MG, ONCE
     Route: 048
     Dates: start: 20110329, end: 20110329

REACTIONS (3)
  - LYMPHADENOPATHY [None]
  - URTICARIA [None]
  - SWELLING FACE [None]
